FAERS Safety Report 9843444 (Version 1)
Quarter: 2013Q4

REPORT INFORMATION
  Report Type: Spontaneous
  Country: US (occurrence: None)
  Receive Date: 20131219
  Receipt Date: 20131219
  Transmission Date: 20140711
  Serious: Yes (Other)
  Sender: FDA-Public Use
  Company Number: 163-20785-13081190

PATIENT
  Age: 71 Year
  Sex: Female

DRUGS (6)
  1. THALOMID [Suspect]
     Indication: MONOCLONAL GAMMOPATHY
     Dosage: 1 IN 1 D
     Route: 048
     Dates: start: 20130628, end: 2013
  2. NEXIUM [Concomitant]
  3. EFFEXOR XR [Concomitant]
  4. CLONIDINE HCL [Concomitant]
  5. AMLODIPINE [Concomitant]
  6. PRAVASTATIN [Concomitant]

REACTIONS (7)
  - Generalised oedema [None]
  - Increased appetite [None]
  - Rash maculo-papular [None]
  - Dyspnoea exertional [None]
  - Fatigue [None]
  - Dizziness [None]
  - Tremor [None]
